FAERS Safety Report 6578184-9 (Version None)
Quarter: 2010Q1

REPORT INFORMATION
  Report Type: 
  Country: None (occurrence: None)
  Receive Date: 20100211
  Receipt Date: 20100115
  Transmission Date: 20100710
  Serious: Yes (Other)
  Sender: FDA-Public Use
  Company Number: US-BAXTER-2009BH010948

PATIENT
  Age: 75 Year
  Sex: Male
  Weight: 83 kg

DRUGS (6)
  1. HEPARIN SODIUM INJECTION [Suspect]
     Indication: ANEURYSM REPAIR
     Route: 042
     Dates: start: 20080201, end: 20080201
  2. HEPARIN SODIUM INJECTION [Suspect]
     Route: 042
     Dates: start: 20080201, end: 20080201
  3. HEPARIN SODIUM INJECTION [Suspect]
     Route: 042
     Dates: start: 20080201, end: 20080201
  4. GEMFIBROZIL [Concomitant]
     Indication: DRUG USE FOR UNKNOWN INDICATION
     Route: 065
  5. ZOCOR [Concomitant]
     Indication: DRUG USE FOR UNKNOWN INDICATION
     Route: 065
  6. ATENOLOL [Concomitant]
     Indication: DRUG USE FOR UNKNOWN INDICATION
     Route: 065

REACTIONS (4)
  - HYPERSENSITIVITY [None]
  - ILIAC ARTERY OCCLUSION [None]
  - RENAL ARTERY OCCLUSION [None]
  - STENT-GRAFT ENDOLEAK [None]
